FAERS Safety Report 8546785-4 (Version None)
Quarter: 2012Q3

REPORT INFORMATION
  Report Type: 
  Country: None (occurrence: None)
  Receive Date: 20120727
  Receipt Date: 20120227
  Transmission Date: 20120928
  Serious: No
  Sender: FDA-Public Use
  Company Number: US-ASTRAZENECA-2012SE08169

PATIENT
  Age: 45 Year
  Sex: Female
  Weight: 92.5 kg

DRUGS (16)
  1. SEROQUEL [Suspect]
     Indication: BIPOLAR II DISORDER
     Route: 048
     Dates: start: 20111201
  2. SEROQUEL [Suspect]
     Indication: DEPRESSION
     Route: 048
     Dates: start: 20111201
  3. SEROQUEL [Suspect]
     Route: 048
     Dates: start: 20111218
  4. DIAZEPAM [Concomitant]
     Dates: start: 20111020
  5. CITALOPRAM HYDROBROMIDE [Concomitant]
     Dates: start: 20110721
  6. VALIUM [Concomitant]
     Indication: ANXIETY
     Dates: start: 20101020, end: 20101130
  7. CELEXA [Concomitant]
     Dates: start: 20101019, end: 20101020
  8. DEPAKOTE ER [Concomitant]
  9. VALIUM [Concomitant]
  10. AMBIEN [Concomitant]
     Indication: INSOMNIA
     Dates: start: 20101201, end: 20110606
  11. PROZAC [Concomitant]
  12. VISTARIL [Concomitant]
     Indication: ANXIETY
     Dates: start: 20101130, end: 20110606
  13. GEODON [Concomitant]
     Dosage: 80 MG IN THE MORNING WITH FOOD
     Dates: start: 20101019, end: 20110606
  14. SEROQUEL [Suspect]
     Route: 048
     Dates: start: 20111218
  15. GEODON [Concomitant]
     Dosage: 80 MG IN THE EVENING WITH FOOD
     Dates: start: 20101019, end: 20110606
  16. PRAZOSIN HCL [Concomitant]
     Dates: start: 20101019, end: 20101130

REACTIONS (5)
  - HYPERPHAGIA [None]
  - DRUG INEFFECTIVE [None]
  - FEELING ABNORMAL [None]
  - DEPRESSION [None]
  - WEIGHT INCREASED [None]
